FAERS Safety Report 9558248 (Version 3)
Quarter: 2013Q4

REPORT INFORMATION
  Report Type: Spontaneous
  Country: DE (occurrence: DE)
  Receive Date: 20130926
  Receipt Date: 20131019
  Transmission Date: 20140711
  Serious: Yes (Hospitalization)
  Sender: FDA-Public Use
  Company Number: DE-US-EMD SERONO, INC.-7238190

PATIENT
  Age: 28 Year
  Sex: Female
  Weight: 85 kg

DRUGS (3)
  1. REBIF [Suspect]
     Indication: MULTIPLE SCLEROSIS
     Route: 058
     Dates: start: 20130805, end: 20130819
  2. REBIF [Suspect]
     Route: 058
     Dates: start: 20130819, end: 20130916
  3. REBIF [Suspect]
     Route: 058
     Dates: start: 20130916

REACTIONS (3)
  - Multiple sclerosis relapse [Recovered/Resolved]
  - General physical health deterioration [Unknown]
  - Fatigue [Unknown]
